FAERS Safety Report 5892069-2 (Version None)
Quarter: 2008Q3

REPORT INFORMATION
  Report Type: 
  Country: None (occurrence: None)
  Receive Date: 20080922
  Receipt Date: 20080917
  Transmission Date: 20090109
  Serious: Yes (Other)
  Sender: FDA-Public Use
  Company Number: JP-B.I. PHARMACEUTICALS,INC./RIDGEFIELD-2008-BP-14432NB

PATIENT
  Age: 69 Year
  Sex: Female

DRUGS (3)
  1. PERSANTINE [Suspect]
     Dosage: 150MG
     Route: 048
  2. WARFARIN SODIUM [Concomitant]
     Dosage: 1MG
     Route: 048
  3. PREDNISOLONE [Concomitant]
     Indication: GLOMERULONEPHRITIS RAPIDLY PROGRESSIVE
     Dosage: 40MG
     Route: 048

REACTIONS (1)
  - SPINAL HAEMATOMA [None]
